FAERS Safety Report 19297717 (Version 1)
Quarter: 2021Q2

REPORT INFORMATION
  Report Type: Report from Study
  Country: CA (occurrence: CA)
  Receive Date: 20210525
  Receipt Date: 20210525
  Transmission Date: 20210717
  Serious: Yes (Other)
  Sender: FDA-Public Use
  Company Number: CA-BAUSCH-BL-2021-017127

PATIENT
  Age: 58 Year
  Sex: Female
  Weight: 66 kg

DRUGS (1)
  1. SALBUTAMOL SULFATE [Suspect]
     Active Substance: ALBUTEROL SULFATE
     Indication: ASTHMA
     Route: 065

REACTIONS (5)
  - Eosinophil count increased [Unknown]
  - Monocyte count increased [Unknown]
  - White blood cell count increased [Unknown]
  - Therapeutic product effect incomplete [Unknown]
  - Asthma [Unknown]
